FAERS Safety Report 19273816 (Version 2)
Quarter: 2021Q3

REPORT INFORMATION
  Report Type: Spontaneous
  Country: PL (occurrence: PL)
  Receive Date: 20210519
  Receipt Date: 20210709
  Transmission Date: 20211014
  Serious: Yes (Other)
  Sender: FDA-Public Use
  Company Number: PL-REGENERON PHARMACEUTICALS, INC.-2021-51441

PATIENT

DRUGS (2)
  1. EYLEA [Suspect]
     Active Substance: AFLIBERCEPT
     Dosage: UNK; DECIDED TO ADMINISTER AFLIBERCEPT IN 2 ANOTHER WEEKS AND THE PATIENT WILL RECEIVE HER NEXT DOSE
  2. EYLEA [Suspect]
     Active Substance: AFLIBERCEPT
     Indication: NEOVASCULAR AGE-RELATED MACULAR DEGENERATION
     Dosage: UNK, EYE UNK; TOTAL NUMBER OF DOSES UNK; LAST DOSE UNK

REACTIONS (1)
  - Retinal haemorrhage [Unknown]
